FAERS Safety Report 5381343-4 (Version None)
Quarter: 2007Q2

REPORT INFORMATION
  Report Type: 
  Country: None (occurrence: None)
  Receive Date: 20070629
  Receipt Date: 20061107
  Transmission Date: 20071010
  Serious: Yes (Hospitalization, Other)
  Sender: FDA-Public Use
  Company Number: 2006136660

PATIENT
  Sex: Female

DRUGS (2)
  1. ZOLOFT [Suspect]
     Indication: ANOREXIA
     Dosage: 25 MG (25 MG, 1 IN 1 D)
     Dates: start: 20061001
  2. ZOLOFT [Suspect]
     Indication: DEPRESSION
     Dosage: 25 MG (25 MG, 1 IN 1 D)
     Dates: start: 20061001

REACTIONS (6)
  - CHEST PAIN [None]
  - DRUG WITHDRAWAL SYNDROME [None]
  - GASTRIC DISORDER [None]
  - NERVOUSNESS [None]
  - PALPITATIONS [None]
  - URINARY TRACT INFECTION [None]
